FAERS Safety Report 5082652-9 (Version None)
Quarter: 2006Q3

REPORT INFORMATION
  Report Type: 
  Country: None (occurrence: None)
  Receive Date: 20060814
  Receipt Date: 20060803
  Transmission Date: 20061208
  Serious: Yes (Other)
  Sender: FDA-Public Use
  Company Number: 2006095888

PATIENT
  Age: 24 Year
  Sex: Female
  Weight: 71.2147 kg

DRUGS (6)
  1. CYTOTEC [Suspect]
     Indication: ABORTION INDUCED
     Dosage: 1600 MG
     Dates: start: 20060802
  2. COLACE (DOCUSATE SODIUM) [Concomitant]
  3. FERROUS GLUCONATE [Concomitant]
  4. LACTATED RINGER'S INJECTION (CALCIUM CHLORIDE DIHYDRATE, POTASSIUM CHL [Concomitant]
  5. ACETAMINOPHEN [Concomitant]
  6. MAGNESIUM SULFATE [Concomitant]

REACTIONS (2)
  - ERYTHEMA [None]
  - TREMOR [None]
